FAERS Safety Report 6505364-0 (Version None)
Quarter: 2009Q4

REPORT INFORMATION
  Report Type: 
  Country: None (occurrence: None)
  Receive Date: 20091218
  Receipt Date: 20091211
  Transmission Date: 20100525
  Serious: Yes (Disabling)
  Sender: FDA-Public Use
  Company Number: DK-BRACCO-000035

PATIENT
  Sex: Male
  Weight: 60 kg

DRUGS (10)
  1. GABAPENTIN [Concomitant]
  2. PREDNISOLONE [Concomitant]
     Indication: SCLERODERMA
  3. AMITRIPTYLINE HYDROCHLORIDE [Concomitant]
  4. OMNISCAN [Suspect]
     Indication: ANGIOGRAM
     Route: 042
     Dates: start: 20050816, end: 20050816
  5. MULTIHANCE [Suspect]
     Indication: VENOGRAM
     Route: 042
     Dates: start: 20030429, end: 20030429
  6. MULTIHANCE [Suspect]
     Indication: ARTERIOGRAM RENAL
     Route: 042
     Dates: start: 20040310, end: 20040310
  7. MULTIHANCE [Suspect]
     Dosage: 30-40 ML
     Route: 042
     Dates: start: 20030423, end: 20030423
  8. MULTIHANCE [Suspect]
     Route: 042
     Dates: start: 20040316, end: 20040316
  9. TRADOLAN [Concomitant]
  10. CYCLOSPORINE [Concomitant]

REACTIONS (3)
  - DYSPHONIA [None]
  - NEPHROGENIC SYSTEMIC FIBROSIS [None]
  - VOCAL CORD PARESIS [None]
